FAERS Safety Report 13136081 (Version 4)
Quarter: 2017Q2

REPORT INFORMATION
  Report Type: Report from Study
  Country: JP (occurrence: JP)
  Receive Date: 20170121
  Receipt Date: 20170414
  Transmission Date: 20170830
  Serious: Yes (Hospitalization, Other)
  Sender: FDA-Public Use
  Company Number: JP-BAXTER-2017BAX002551

PATIENT
  Age: 11 Year
  Sex: Male
  Weight: 33 kg

DRUGS (19)
  1. VFEND [Suspect]
     Active Substance: VORICONAZOLE
     Dosage: DOSE INCREASED
     Route: 065
     Dates: start: 20160726, end: 20160905
  2. VFEND [Suspect]
     Active Substance: VORICONAZOLE
     Route: 065
  3. PREDNISOLONE. [Suspect]
     Active Substance: PREDNISOLONE
     Indication: DIARRHOEA
     Dosage: DOSE INCREASED
     Route: 065
     Dates: start: 20160831
  4. AMBISOME [Concomitant]
     Active Substance: AMPHOTERICIN B
     Indication: ANTIFUNGAL PROPHYLAXIS
     Route: 065
     Dates: start: 20160709, end: 20160711
  5. METHOTREXATE. [Concomitant]
     Active Substance: METHOTREXATE
     Indication: ANTIFUNGAL PROPHYLAXIS
     Route: 065
     Dates: start: 20160816, end: 20160816
  6. FLUCONAZOLE. [Concomitant]
     Active Substance: FLUCONAZOLE
     Indication: PRODUCT USED FOR UNKNOWN INDICATION
     Route: 048
  7. ENDOXAN 1G [Suspect]
     Active Substance: CYCLOPHOSPHAMIDE
     Indication: PRODUCT USED FOR UNKNOWN INDICATION
     Route: 041
     Dates: start: 20160814, end: 20160815
  8. AMBISOME [Concomitant]
     Active Substance: AMPHOTERICIN B
     Route: 065
     Dates: start: 20160712, end: 20160713
  9. MEROPEN [Concomitant]
     Active Substance: MEROPENEM
     Indication: PRODUCT USED FOR UNKNOWN INDICATION
     Route: 065
  10. TACROLIMUS. [Concomitant]
     Active Substance: TACROLIMUS
     Indication: ANTIFUNGAL PROPHYLAXIS
     Route: 065
     Dates: start: 20160814, end: 20160824
  11. TACROLIMUS. [Concomitant]
     Active Substance: TACROLIMUS
     Route: 065
     Dates: start: 20160825, end: 20160905
  12. METHOTREXATE. [Concomitant]
     Active Substance: METHOTREXATE
     Route: 065
     Dates: start: 20160818, end: 20160818
  13. VFEND [Suspect]
     Active Substance: VORICONAZOLE
     Route: 065
     Dates: start: 20160714, end: 20160725
  14. PREDNISOLONE. [Suspect]
     Active Substance: PREDNISOLONE
     Indication: ANTIFUNGAL PROPHYLAXIS
     Route: 065
     Dates: start: 20160814, end: 20160830
  15. METHOTREXATE. [Concomitant]
     Active Substance: METHOTREXATE
     Route: 065
     Dates: start: 20160821, end: 20160821
  16. VICCLOX [Concomitant]
     Active Substance: ACYCLOVIR SODIUM
     Indication: STEM CELL TRANSPLANT
     Route: 041
     Dates: start: 20160814, end: 20160910
  17. VFEND [Suspect]
     Active Substance: VORICONAZOLE
     Indication: ANTIFUNGAL PROPHYLAXIS
     Route: 065
     Dates: start: 20160702, end: 20160708
  18. TACROLIMUS. [Concomitant]
     Active Substance: TACROLIMUS
     Route: 065
  19. THYMOGLOBULINE [Concomitant]
     Active Substance: LAPINE T-LYMPHOCYTE IMMUNE GLOBULIN
     Indication: PRODUCT USED FOR UNKNOWN INDICATION
     Route: 041
     Dates: start: 20160812, end: 20160812

REACTIONS (3)
  - Diabetes mellitus [Recovered/Resolved]
  - Diarrhoea [Recovered/Resolved]
  - Chronic graft versus host disease [Not Recovered/Not Resolved]

NARRATIVE: CASE EVENT DATE: 20160815
